FAERS Safety Report 14167334 (Version 2)
Quarter: 2017Q4

REPORT INFORMATION
  Report Type: Report from Study
  Country: None (occurrence: US)
  Receive Date: 20171108
  Receipt Date: 20171218
  Transmission Date: 20180321
  Serious: Yes (Hospitalization, Other)
  Sender: FDA-Public Use
  Company Number: US-ABBVIE-17K-163-2142242-00

PATIENT
  Age: 69 Year
  Sex: Male
  Weight: 74.91 kg

DRUGS (11)
  1. HUMIRA [Suspect]
     Active Substance: ADALIMUMAB
     Indication: CROHN^S DISEASE
     Dosage: HELD FOR ONE MONTH FOR ILEOSTOMY SURGERY
     Route: 058
     Dates: start: 201612, end: 201702
  2. HUMIRA [Suspect]
     Active Substance: ADALIMUMAB
     Dosage: HELD FOR ONE MONTH FOR KNEE SURGERY
     Route: 058
     Dates: start: 201702, end: 201707
  3. LYRICA [Concomitant]
     Active Substance: PREGABALIN
     Indication: DIABETIC NEUROPATHY
  4. TRAZODONE [Concomitant]
     Active Substance: TRAZODONE HYDROCHLORIDE
     Indication: INSOMNIA
  5. METFORMIN [Concomitant]
     Active Substance: METFORMIN HYDROCHLORIDE
     Indication: TYPE 2 DIABETES MELLITUS
  6. DIPHENOXYLATE-ATROPINE [Concomitant]
     Indication: CROHN^S DISEASE
  7. HUMIRA [Suspect]
     Active Substance: ADALIMUMAB
     Dosage: HELD FOR ONE MONTH FOR KNEE SURGERY
     Route: 058
     Dates: start: 201707
  8. FOLIC ACID. [Concomitant]
     Active Substance: FOLIC ACID
     Indication: CROHN^S DISEASE
  9. METHOTREXATE. [Concomitant]
     Active Substance: METHOTREXATE
     Indication: CROHN^S DISEASE
  10. PRAMIPEXOLE. [Concomitant]
     Active Substance: PRAMIPEXOLE
     Indication: RESTLESS LEGS SYNDROME
  11. LANSOPRAZOLE. [Concomitant]
     Active Substance: LANSOPRAZOLE
     Indication: DYSPEPSIA

REACTIONS (10)
  - Drug ineffective [Not Recovered/Not Resolved]
  - Arthralgia [Recovering/Resolving]
  - Myalgia [Unknown]
  - Joint injury [Recovered/Resolved]
  - Spinal operation [Unknown]
  - Urinary tract operation [Unknown]
  - Prostatomegaly [Recovered/Resolved]
  - Pruritus [Recovering/Resolving]
  - Surgical failure [Recovered/Resolved]
  - Pain [Unknown]

NARRATIVE: CASE EVENT DATE: 2017
